FAERS Safety Report 8775486 (Version 1)
Quarter: 2012Q4

REPORT INFORMATION
  Report Type: 
  Country: DE (occurrence: US)
  Receive Date: 20120910
  Receipt Date: 20120910
  Transmission Date: 20130627
  Serious: Yes (Other)
  Sender: FDA-Public Use
  Company Number: US-GENZYME-LEUK-1000288

PATIENT
  Age: 67 Year
  Sex: Male
  Weight: 84 kg

DRUGS (6)
  1. LEUKINE [Suspect]
     Indication: MALIGNANT MELANOMA
     Dosage: 250 mcg,QD on days 1-14 in 21 day cycle, induction therapy
     Route: 065
     Dates: start: 20110628, end: 20120530
  2. LEUKINE [Suspect]
     Dosage: 250 mcg, qd (Cycles 5+) on days 1-14, maintenance therapy
     Route: 065
  3. ANTINEOPLASTIC AGENTS [Suspect]
     Indication: MALIGNANT MELANOMA
     Dosage: cycle 1-4,10 mg/kg, on day 1 in 21 day cycle
     Route: 042
     Dates: start: 20120628
  4. ANTINEOPLASTIC AGENTS [Suspect]
     Dosage: cycle 5+,10 mg/kg, on day 1 Q12 weeks
     Dates: end: 20120508
  5. PREDNISONE [Concomitant]
     Indication: PRODUCT USED FOR UNKNOWN INDICATION
     Dosage: 15 mg, qd
     Route: 048
     Dates: end: 20120605
  6. PREDNISONE [Concomitant]
     Dosage: 5 mg, qd
     Route: 065

REACTIONS (14)
  - Pancreatitis [Recovered/Resolved]
  - Blood glucose decreased [Unknown]
  - Lipase increased [Not Recovered/Not Resolved]
  - Neuropathy peripheral [Unknown]
  - Abdominal discomfort [Unknown]
  - Musculoskeletal discomfort [Not Recovered/Not Resolved]
  - Pain in extremity [Unknown]
  - Fatigue [Unknown]
  - Weight decreased [Unknown]
  - Arthralgia [Not Recovered/Not Resolved]
  - Decreased appetite [Recovered/Resolved]
  - Diarrhoea [Unknown]
  - Nausea [Unknown]
  - Chills [Unknown]
